FAERS Safety Report 6676804-1 (Version None)
Quarter: 2010Q2

REPORT INFORMATION
  Report Type: 
  Country: None (occurrence: None)
  Receive Date: 20100409
  Receipt Date: 20100409
  Transmission Date: 20101027
  Serious: No
  Sender: FDA-Public Use
  Company Number: None

PATIENT
  Sex: Female
  Weight: 68.0396 kg

DRUGS (2)
  1. CYMBALTA [Suspect]
     Indication: BIPOLAR DISORDER
     Dosage: TAKE 1-2 TIMES A DAY
     Dates: start: 20100226
  2. CYMBALTA [Suspect]
     Indication: NERVOUS SYSTEM DISORDER
     Dosage: TAKE 1-2 TIMES A DAY
     Dates: start: 20100226

REACTIONS (3)
  - MOVEMENT DISORDER [None]
  - NAUSEA [None]
  - SUDDEN ONSET OF SLEEP [None]
